FAERS Safety Report 18203532 (Version 1)
Quarter: 2020Q3

REPORT INFORMATION
  Report Type: Spontaneous
  Country: CN (occurrence: CN)
  Receive Date: 20200827
  Receipt Date: 20200827
  Transmission Date: 20201103
  Serious: Yes (Death, Other)
  Sender: FDA-Public Use
  Company Number: CN-OTSUKA-2020_020663

PATIENT
  Age: 17 Year
  Sex: Male

DRUGS (18)
  1. BUSULFAN. [Suspect]
     Active Substance: BUSULFAN
     Indication: ALLOGENIC STEM CELL TRANSPLANTATION
  2. ANTITHYMOCYTE IMMUNOGLOBULIN [Suspect]
     Active Substance: THYMOCYTE IMMUNE GLOBULIN NOS
     Indication: CONGENITAL APLASTIC ANAEMIA
     Dosage: UNK
     Route: 065
  3. BUSULFAN. [Suspect]
     Active Substance: BUSULFAN
     Indication: CONGENITAL APLASTIC ANAEMIA
     Dosage: UNK
     Route: 065
  4. DECITABINE. [Suspect]
     Active Substance: DECITABINE
     Indication: ALLOGENIC STEM CELL TRANSPLANTATION
  5. FLUDARABINE [Suspect]
     Active Substance: FLUDARABINE PHOSPHATE
     Indication: CONGENITAL APLASTIC ANAEMIA
     Dosage: UNK
     Route: 065
  6. DECITABINE. [Suspect]
     Active Substance: DECITABINE
     Indication: CONGENITAL APLASTIC ANAEMIA
     Dosage: UNK
     Route: 065
  7. ARA?C [Suspect]
     Active Substance: CYTARABINE
     Indication: STEM CELL TRANSPLANT
  8. FLUDARABINE [Suspect]
     Active Substance: FLUDARABINE PHOSPHATE
     Indication: BONE MARROW CONDITIONING REGIMEN
  9. ANTITHYMOCYTE IMMUNOGLOBULIN [Suspect]
     Active Substance: THYMOCYTE IMMUNE GLOBULIN NOS
     Indication: BONE MARROW CONDITIONING REGIMEN
  10. SEMUSTINE [Suspect]
     Active Substance: SEMUSTINE
     Indication: ALLOGENIC STEM CELL TRANSPLANTATION
  11. ARA?C [Suspect]
     Active Substance: CYTARABINE
     Indication: CONGENITAL APLASTIC ANAEMIA
     Dosage: UNK
     Route: 065
  12. SEMUSTINE [Suspect]
     Active Substance: SEMUSTINE
     Indication: CONGENITAL APLASTIC ANAEMIA
     Dosage: UNK
     Route: 065
  13. FLUDARABINE [Suspect]
     Active Substance: FLUDARABINE PHOSPHATE
     Indication: ALLOGENIC STEM CELL TRANSPLANTATION
  14. SEMUSTINE [Suspect]
     Active Substance: SEMUSTINE
     Indication: BONE MARROW CONDITIONING REGIMEN
  15. BUSULFAN. [Suspect]
     Active Substance: BUSULFAN
     Indication: BONE MARROW CONDITIONING REGIMEN
  16. DECITABINE. [Suspect]
     Active Substance: DECITABINE
     Indication: BONE MARROW CONDITIONING REGIMEN
  17. ANTITHYMOCYTE IMMUNOGLOBULIN [Suspect]
     Active Substance: THYMOCYTE IMMUNE GLOBULIN NOS
     Indication: ALLOGENIC STEM CELL TRANSPLANTATION
  18. ARA?C [Suspect]
     Active Substance: CYTARABINE
     Indication: BONE MARROW CONDITIONING REGIMEN

REACTIONS (2)
  - Product use in unapproved indication [Unknown]
  - Multiple organ dysfunction syndrome [Fatal]
